FAERS Safety Report 8965998 (Version 1)
Quarter: 2012Q4

REPORT INFORMATION
  Report Type: 
  Country: US (occurrence: US)
  Receive Date: 20121214
  Receipt Date: 20121214
  Transmission Date: 20130627
  Serious: Yes (Other)
  Sender: FDA-Public Use
  Company Number: CHPA2012US024740

PATIENT
  Age: 61 Year
  Sex: Female

DRUGS (3)
  1. MAALOX ANTACID [Suspect]
     Indication: GASTROOESOPHAGEAL REFLUX DISEASE
     Dosage: 2 or 3 DF, PRN
     Route: 048
     Dates: start: 1995, end: 201208
  2. MAALOX ANTACID/ANTIGAS MAX LIQ UNKNOWN [Suspect]
     Indication: GASTROOESOPHAGEAL REFLUX DISEASE
     Dosage: 6 TSP, PRN
     Route: 048
     Dates: start: 1995, end: 201208
  3. DRUG THERAPY NOS [Concomitant]
     Indication: BLOOD PRESSURE
     Dosage: Unk, Unk

REACTIONS (12)
  - Atrial fibrillation [Not Recovered/Not Resolved]
  - Breast cancer [Recovered/Resolved]
  - Diabetes mellitus [Not Recovered/Not Resolved]
  - Meniere^s disease [Recovered/Resolved]
  - Gastrooesophageal reflux disease [Not Recovered/Not Resolved]
  - Impaired gastric emptying [Not Recovered/Not Resolved]
  - Hiatus hernia [Not Recovered/Not Resolved]
  - Fibromyalgia [Not Recovered/Not Resolved]
  - Pain [Not Recovered/Not Resolved]
  - Hypersensitivity [Not Recovered/Not Resolved]
  - Epistaxis [Unknown]
  - Off label use [Unknown]
